FAERS Safety Report 13882885 (Version 1)
Quarter: 2017Q3

REPORT INFORMATION
  Report Type: Spontaneous
  Country: US (occurrence: US)
  Receive Date: 20170818
  Receipt Date: 20170818
  Transmission Date: 20171127
  Serious: No
  Sender: FDA-Public Use
  Company Number: US-PFIZER INC-2017353535

PATIENT
  Sex: Female

DRUGS (1)
  1. METHOTREXATE SODIUM. [Suspect]
     Active Substance: METHOTREXATE SODIUM
     Dosage: 15 MG, WEEKLY

REACTIONS (8)
  - Musculoskeletal discomfort [Unknown]
  - Arthralgia [Unknown]
  - Mean cell haemoglobin concentration decreased [Unknown]
  - Granulocyte count increased [Unknown]
  - Musculoskeletal stiffness [Unknown]
  - Mean cell haemoglobin decreased [Unknown]
  - Back pain [Unknown]
  - Lymphocyte count decreased [Unknown]
